FAERS Safety Report 8565460-3 (Version None)
Quarter: 2012Q3

REPORT INFORMATION
  Report Type: 
  Country: None (occurrence: None)
  Receive Date: 20120803
  Receipt Date: 20110225
  Transmission Date: 20120928
  Serious: Yes (Other)
  Sender: FDA-Public Use
  Company Number: PT-ROCHE-754077

PATIENT
  Sex: Female

DRUGS (2)
  1. MABTHERA [Suspect]
     Indication: RHEUMATOID ARTHRITIS
     Route: 042
     Dates: start: 20100101, end: 20100101
  2. ANTIHYPERTENSIVE AGENTS [Concomitant]
     Indication: HYPERTENSION

REACTIONS (3)
  - HYPERTENSIVE CRISIS [None]
  - BLOOD IMMUNOGLOBULIN A INCREASED [None]
  - RENAL FAILURE CHRONIC [None]
